FAERS Safety Report 19815351 (Version 4)
Quarter: 2024Q3

REPORT INFORMATION
  Report Type: Report from Study
  Country: US (occurrence: US)
  Receive Date: 20210910
  Receipt Date: 20240820
  Transmission Date: 20241017
  Serious: Yes (Hospitalization, Other)
  Sender: PFIZER
  Company Number: US-PFIZER INC-202101139966

PATIENT
  Age: 60 Year
  Sex: Female

DRUGS (9)
  1. UNSPECIFIED INGREDIENT [Suspect]
     Active Substance: UNSPECIFIED INGREDIENT
     Dosage: UNK
  2. XOSPATA [Suspect]
     Active Substance: GILTERITINIB
     Indication: Acute myeloid leukaemia recurrent
     Dosage: 120 MG, 1X/DAY
     Route: 048
     Dates: start: 20191211
  3. XOSPATA [Suspect]
     Active Substance: GILTERITINIB
     Dosage: 120 MG, 1X/DAY
     Route: 048
  4. XOSPATA [Suspect]
     Active Substance: GILTERITINIB
     Dosage: 120 MG, 1X/DAY
     Route: 048
     Dates: start: 20191211
  5. XOSPATA [Suspect]
     Active Substance: GILTERITINIB
     Dosage: 120 MG, 1X/DAY
     Route: 048
  6. XOSPATA [Suspect]
     Active Substance: GILTERITINIB
     Dosage: 120 MG, 1X/DAY
     Route: 048
  7. XOSPATA [Suspect]
     Active Substance: GILTERITINIB
     Dosage: 120 MG, 1X/DAY [IN THE EVENING WITH FOOD]
     Route: 048
     Dates: start: 20191211
  8. XOSPATA [Suspect]
     Active Substance: GILTERITINIB
     Dosage: UNK
  9. VARICELLA-ZOSTER VIRUS STRAIN OKA/MERCK LIVE ANTIGEN [Suspect]
     Active Substance: VARICELLA-ZOSTER VIRUS STRAIN OKA/MERCK LIVE ANTIGEN
     Indication: Immunisation
     Dosage: UNK
     Dates: start: 20210308

REACTIONS (7)
  - Acute myeloid leukaemia recurrent [Unknown]
  - Drug hypersensitivity [Unknown]
  - White blood cell disorder [Unknown]
  - Weight increased [Unknown]
  - Hepatic enzyme increased [Unknown]
  - Rash [Recovered/Resolved]
  - Gastrooesophageal reflux disease [Unknown]

NARRATIVE: CASE EVENT DATE: 20210301
